FAERS Safety Report 7019615-X (Version None)
Quarter: 2010Q3

REPORT INFORMATION
  Report Type: 
  Country: None (occurrence: None)
  Receive Date: 20100928
  Receipt Date: 20100924
  Transmission Date: 20110219
  Serious: Yes (Life-Threatening)
  Sender: FDA-Public Use
  Company Number: FR-SANOFI-AVENTIS-2010SA057376

PATIENT
  Age: 66 Year
  Sex: Female

DRUGS (3)
  1. ELOXATIN [Suspect]
     Route: 041
     Dates: start: 20100830, end: 20100830
  2. FLUOROURACILE [Suspect]
     Dosage: 598 MG + 807 MG
     Route: 042
     Dates: start: 20100830, end: 20100830
  3. LEUCOVORIN CALCIUM [Concomitant]
     Route: 042

REACTIONS (2)
  - ENCEPHALOPATHY [None]
  - STATUS EPILEPTICUS [None]
